FAERS Safety Report 6095072-5 (Version None)
Quarter: 2009Q1

REPORT INFORMATION
  Report Type: 
  Country: None (occurrence: None)
  Receive Date: 20090227
  Receipt Date: 20080111
  Transmission Date: 20090719
  Serious: No
  Sender: FDA-Public Use
  Company Number: A0702773A

PATIENT
  Age: 36 Year
  Sex: Male

DRUGS (4)
  1. LAMICTAL [Suspect]
     Indication: BIPOLAR DISORDER
     Dosage: 150MG AT NIGHT
     Route: 048
     Dates: start: 20071101
  2. HUMALOG [Concomitant]
  3. LANTUS [Concomitant]
  4. PROTONIX [Concomitant]

REACTIONS (3)
  - BALANCE DISORDER [None]
  - DIZZINESS [None]
  - SLEEP DISORDER [None]
